FAERS Safety Report 14410013 (Version 1)
Quarter: 2018Q1

REPORT INFORMATION
  Report Type: Spontaneous
  Country: US (occurrence: US)
  Receive Date: 20180116
  Receipt Date: 20180116
  Transmission Date: 20180509
  Serious: Yes (Hospitalization)
  Sender: FDA-Public Use
  Company Number: None

PATIENT
  Age: 1 Year
  Sex: Male
  Weight: 10.4 kg

DRUGS (1)
  1. SYNAGIS [Suspect]
     Active Substance: PALIVIZUMAB
     Indication: PREGNANCY
     Dosage: DOSE - 15MG PER KG
     Route: 030
     Dates: start: 20171113

REACTIONS (2)
  - Exposure during pregnancy [None]
  - Hospitalisation [None]

NARRATIVE: CASE EVENT DATE: 20180116
